FAERS Safety Report 8710642 (Version 2)
Quarter: 2013Q4

REPORT INFORMATION
  Report Type: Spontaneous
  Country: US (occurrence: US)
  Receive Date: 20120807
  Receipt Date: 20131101
  Transmission Date: 20140711
  Serious: No
  Sender: FDA-Public Use
  Company Number: US-009507513-1207USA009233

PATIENT
  Age: 54 Year
  Sex: Female

DRUGS (3)
  1. PEGINTRON [Suspect]
     Indication: HEPATITIS C
     Dosage: INJECT 0.4 ML ONCE A WEEK (OF 80 MCG/0.5ML)
     Route: 058
  2. REBETOL [Suspect]
     Indication: HEPATITIS C
     Dosage: UNK
  3. TELAPREVIR [Suspect]
     Indication: HEPATITIS C
     Dosage: 4 X 42 TABS

REACTIONS (2)
  - Influenza like illness [Unknown]
  - Rash generalised [Unknown]
